FAERS Safety Report 5862003-X (Version None)
Quarter: 2008Q3

REPORT INFORMATION
  Report Type: 
  Country: None (occurrence: None)
  Receive Date: 20080827
  Receipt Date: 20080626
  Transmission Date: 20090109
  Serious: Yes (Hospitalization)
  Sender: FDA-Public Use
  Company Number: US-ABBOTT-08P-163-0459609-00

PATIENT
  Sex: Female
  Weight: 77.18 kg

DRUGS (9)
  1. COATED PDS [Suspect]
     Indication: BLOOD CHOLESTEROL INCREASED
     Dates: start: 20080415
  2. ACETYLSALICYLIC ACID SRT [Concomitant]
     Indication: DRUG USE FOR UNKNOWN INDICATION
     Route: 048
  3. ISORB MONO [Concomitant]
     Indication: HYPERTENSION
     Dosage: DAILY
     Route: 048
     Dates: start: 20080501
  4. QUINAPRIL HCTZ [Concomitant]
     Indication: DRUG USE FOR UNKNOWN INDICATION
     Dosage: 10/12.5 MG, DAILY
     Route: 048
     Dates: start: 20080501
  5. DILTIAZEM HCL [Concomitant]
     Indication: DRUG USE FOR UNKNOWN INDICATION
     Dosage: DAILY
     Route: 048
     Dates: start: 20080501
  6. LEVOTHYROXINE SODIUM [Concomitant]
     Indication: HYPOTHYROIDISM
     Dosage: DAILY
     Route: 048
  7. LEVOTHYROXINE SODIUM [Concomitant]
     Indication: THYROID DISORDER
     Dosage: DAILY
     Route: 048
  8. LEVOTHYROXINE SODIUM [Concomitant]
     Route: 048
     Dates: start: 20070701, end: 20071201
  9. LEVOTHYROXINE SODIUM [Concomitant]
     Dosage: DAILY
     Route: 048
     Dates: start: 20071201

REACTIONS (3)
  - FLUSHING [None]
  - MUSCULOSKELETAL PAIN [None]
  - PRURITUS [None]
